FAERS Safety Report 20648652 (Version 1)
Quarter: 2022Q1

REPORT INFORMATION
  Report Type: Spontaneous
  Country: US (occurrence: None)
  Receive Date: 20220328
  Receipt Date: 20220328
  Transmission Date: 20220423
  Serious: Yes (Hospitalization)
  Sender: FDA-Public Use
  Company Number: None

PATIENT
  Sex: Female

DRUGS (1)
  1. UPTRAVI [Suspect]
     Active Substance: SELEXIPAG
     Indication: Pulmonary arterial hypertension
     Route: 048
     Dates: start: 20210904

REACTIONS (6)
  - Hyperhidrosis [None]
  - Heart rate decreased [None]
  - Hypotension [None]
  - Diarrhoea [None]
  - Headache [None]
  - Fatigue [None]
